FAERS Safety Report 11203552 (Version 4)
Quarter: 2016Q3

REPORT INFORMATION
  Report Type: Report from Study
  Country: CA (occurrence: CA)
  Receive Date: 20150619
  Receipt Date: 20160909
  Transmission Date: 20161109
  Serious: Yes (Hospitalization, Other)
  Sender: FDA-Public Use
  Company Number: PHHY2012CA041573

PATIENT
  Age: 77 Year
  Sex: Male

DRUGS (1)
  1. SANDOSTATIN LAR DEPOT [Suspect]
     Active Substance: OCTREOTIDE ACETATE
     Indication: NEUROENDOCRINE TUMOUR
     Dosage: 30 MG, QMO (ONCE A MONTH)
     Route: 030
     Dates: start: 20111213

REACTIONS (12)
  - Fatigue [Unknown]
  - Gait disturbance [Unknown]
  - Oedema peripheral [Unknown]
  - Spinal fracture [Unknown]
  - Epilepsy [Unknown]
  - Back pain [Unknown]
  - Pain [Unknown]
  - Depression [Unknown]
  - Blood pressure increased [Unknown]
  - Blood pressure systolic increased [Unknown]
  - Delirium [Unknown]
  - Injection site pain [Unknown]

NARRATIVE: CASE EVENT DATE: 20121217
